FAERS Safety Report 21344142 (Version 2)
Quarter: 2023Q2

REPORT INFORMATION
  Report Type: Spontaneous
  Country: JP (occurrence: JP)
  Receive Date: 20220916
  Receipt Date: 20230628
  Transmission Date: 20230721
  Serious: Yes (Other)
  Sender: FDA-Public Use
  Company Number: JP-NOVEN PHARMACEUTICALS, INC.-2022-NOV-JP000856

PATIENT
  Age: 56 Year
  Sex: Female

DRUGS (5)
  1. ESTRADIOL\NORETHINDRONE ACETATE [Suspect]
     Active Substance: ESTRADIOL\NORETHINDRONE ACETATE
     Indication: Menopausal symptoms
     Dosage: UNKNOWN, UNK
     Route: 062
     Dates: start: 20230608
  2. ESTRADIOL\NORETHINDRONE ACETATE [Suspect]
     Active Substance: ESTRADIOL\NORETHINDRONE ACETATE
     Dosage: UNKNOWN, UNK
     Route: 062
     Dates: start: 20220905, end: 20230607
  3. ESTRADIOL\NORETHINDRONE ACETATE [Suspect]
     Active Substance: ESTRADIOL\NORETHINDRONE ACETATE
     Dosage: UNKNOWN, UNK
     Route: 062
     Dates: start: 20220902, end: 20220904
  4. ESTRADIOL\NORETHINDRONE ACETATE [Suspect]
     Active Substance: ESTRADIOL\NORETHINDRONE ACETATE
     Dosage: UNKNOWN, UNK
     Route: 062
     Dates: start: 2022, end: 20220902
  5. ESTRADIOL\NORETHINDRONE ACETATE [Suspect]
     Active Substance: ESTRADIOL\NORETHINDRONE ACETATE
     Dosage: UNKNOWN, UNK
     Route: 062
     Dates: start: 2013, end: 2022

REACTIONS (1)
  - Physical deconditioning [Unknown]

NARRATIVE: CASE EVENT DATE: 20220902
